FAERS Safety Report 16426986 (Version 1)
Quarter: 2019Q2

REPORT INFORMATION
  Report Type: Spontaneous
  Country: US (occurrence: US)
  Receive Date: 20190506
  Receipt Date: 20190506
  Transmission Date: 20190711
  Serious: Yes (Death, Hospitalization)
  Sender: FDA-Public Use
  Company Number: None

PATIENT
  Age: 77 Year
  Sex: Male

DRUGS (1)
  1. LOSARTAN 100MG TAB [Suspect]
     Active Substance: LOSARTAN
     Indication: INTRACARDIAC PRESSURE INCREASED
     Dosage: ?          QUANTITY:0.5 DF DOSAGE FORM;?
     Route: 048

REACTIONS (2)
  - Asthenia [None]
  - Fatigue [None]

NARRATIVE: CASE EVENT DATE: 20180614
